FAERS Safety Report 17147261 (Version 2)
Quarter: 2019Q4

REPORT INFORMATION
  Report Type: Spontaneous
  Country: AU (occurrence: AU)
  Receive Date: 20191212
  Receipt Date: 20191218
  Transmission Date: 20200122
  Serious: Yes (Death, Other)
  Sender: FDA-Public Use
  Company Number: AU-GLAXOSMITHKLINE-AU2019APC211173

PATIENT

DRUGS (1)
  1. NICABATE [Suspect]
     Active Substance: NICOTINE
     Indication: EX-TOBACCO USER
     Dosage: UNK(21 MG)

REACTIONS (3)
  - Product complaint [Unknown]
  - Death [Fatal]
  - Drug ineffective [Unknown]
